FAERS Safety Report 4792422-4 (Version None)
Quarter: 2005Q4

REPORT INFORMATION
  Report Type: 
  Country: None (occurrence: None)
  Receive Date: 20051010
  Receipt Date: 20050929
  Transmission Date: 20060501
  Serious: Yes (Other)
  Sender: FDA-Public Use
  Company Number: PHEH2005US10869

PATIENT
  Age: 85 Year
  Sex: Male

DRUGS (3)
  1. AREDIA [Suspect]
     Indication: MULTIPLE MYELOMA
     Dates: start: 20000801, end: 20050601
  2. THALIDOMIDE [Concomitant]
     Indication: MULTIPLE MYELOMA
  3. VELCADE [Concomitant]
     Indication: MULTIPLE MYELOMA

REACTIONS (6)
  - BONE DISORDER [None]
  - IMPAIRED HEALING [None]
  - MEDICAL DEVICE REMOVAL [None]
  - OSTEONECROSIS [None]
  - TOOTHACHE [None]
  - WOUND DEBRIDEMENT [None]
